FAERS Safety Report 7241427-2 (Version None)
Quarter: 2011Q1

REPORT INFORMATION
  Report Type: 
  Country: None (occurrence: None)
  Receive Date: 20110124
  Receipt Date: 20110111
  Transmission Date: 20110831
  Serious: Yes (Hospitalization, Other)
  Sender: FDA-Public Use
  Company Number: PHHY2010GB87596

PATIENT
  Age: 65 Year
  Sex: Male

DRUGS (10)
  1. MYCOPHENOLATE MOFETIL [Suspect]
     Indication: RENAL VASCULITIS
     Dosage: 1 G, BID
     Dates: start: 20080201
  2. PREDNISOLONE [Suspect]
     Indication: RENAL VASCULITIS
     Dosage: 80 MG, UNK
     Dates: start: 20071101
  3. RITUXIMAB [Suspect]
     Indication: RENAL VASCULITIS
     Dosage: 375 MG/M2, QW
     Dates: start: 20090501, end: 20091201
  4. CYCLOPHOSPHAMIDE [Concomitant]
     Dates: start: 20071101, end: 20080401
  5. METHYLPREDNISOLONE [Concomitant]
     Indication: VASCULITIS
     Route: 042
  6. MYCOPHENOLATE MOFETIL [Suspect]
     Dosage: 2 G, BID
     Dates: start: 20080701, end: 20080901
  7. PREDNISOLONE [Suspect]
     Dosage: 25 MG, UNK
     Dates: start: 20080901
  8. RITUXIMAB [Suspect]
     Dosage: 375 MG/M2, QW
     Dates: start: 20080901, end: 20081001
  9. AZATHIOPRINE [Concomitant]
     Dosage: UNK
     Dates: end: 20080701
  10. COTRIM [Concomitant]
     Indication: BLOOD CREATININE INCREASED
     Dosage: UNK
     Dates: start: 20071101

REACTIONS (16)
  - MUSCULAR WEAKNESS [None]
  - SENSORY LOSS [None]
  - PULMONARY VASCULITIS [None]
  - SPIROMETRY ABNORMAL [None]
  - PAIN [None]
  - C-REACTIVE PROTEIN INCREASED [None]
  - MUSCULOSKELETAL PAIN [None]
  - LOWER RESPIRATORY TRACT INFECTION [None]
  - MYELITIS TRANSVERSE [None]
  - VASCULITIS [None]
  - RESPIRATORY GAS EXCHANGE DISORDER [None]
  - FAECALOMA [None]
  - CUSHING'S SYNDROME [None]
  - URINARY RETENTION [None]
  - CENTRAL NERVOUS SYSTEM LESION [None]
  - PLEURAL FIBROSIS [None]
